FAERS Safety Report 9314601 (Version 1)
Quarter: 2013Q2

REPORT INFORMATION
  Report Type: Spontaneous
  Country: JP (occurrence: JP)
  Receive Date: 20130529
  Receipt Date: 20130529
  Transmission Date: 20140414
  Serious: Yes (Other)
  Sender: FDA-Public Use
  Company Number: JP-ASTELLAS-2013JP006109

PATIENT
  Age: 41 Year
  Sex: Male

DRUGS (4)
  1. PROGRAF [Suspect]
     Indication: PROPHYLAXIS AGAINST GRAFT VERSUS HOST DISEASE
     Route: 065
  2. FLUDARABINE [Concomitant]
     Indication: PREMEDICATION
     Dosage: 25 MG/M2, UNKNOWN/D
     Route: 042
  3. MELPHALAN [Concomitant]
     Indication: PREMEDICATION
     Dosage: 80 MG/M2, UNKNOWN/D
     Route: 042
  4. ANTHRACYCLINES [Concomitant]
     Indication: CHEMOTHERAPY
     Dosage: UNK
     Route: 065

REACTIONS (3)
  - Drug ineffective [Unknown]
  - Chronic graft versus host disease [Unknown]
  - Acute graft versus host disease [Recovering/Resolving]
